FAERS Safety Report 4530465-6 (Version None)
Quarter: 2004Q4

REPORT INFORMATION
  Report Type: 
  Country: None (occurrence: None)
  Receive Date: 20041215
  Receipt Date: 20041125
  Transmission Date: 20050328
  Serious: Yes (Hospitalization)
  Sender: FDA-Public Use
  Company Number: GXKR2004IN00443

PATIENT
  Age: 21 Year
  Sex: Female
  Weight: 35 kg

DRUGS (2)
  1. RIMSTAR (CODE NOT BROKEN) [Suspect]
     Dosage: 2 UNK, BID, ORAL
     Route: 048
     Dates: start: 20040723, end: 20040805
  2. RIMSTAR (CODE NOT BROKEN) TABLET [Concomitant]
     Dosage: 2 UNK, BID, ORAL
     Route: 048
     Dates: start: 20040723, end: 20040805

REACTIONS (1)
  - ASTHENIA [None]
